FAERS Safety Report 15393367 (Version 1)
Quarter: 2018Q3

REPORT INFORMATION
  Report Type: Spontaneous
  Country: CA (occurrence: CA)
  Receive Date: 20180917
  Receipt Date: 20180917
  Transmission Date: 20181010
  Serious: Yes (Disabling, Other)
  Sender: FDA-Public Use
  Company Number: CA-PURDUE PHARMA-CAN-2018-0008969

PATIENT
  Age: 40 Year
  Sex: Female

DRUGS (33)
  1. XYREM [Interacting]
     Active Substance: SODIUM OXYBATE
     Dosage: 3.5 G, BID
     Route: 048
  2. XYREM [Interacting]
     Active Substance: SODIUM OXYBATE
     Dosage: 3.75 G, BID
     Route: 048
  3. XYREM [Interacting]
     Active Substance: SODIUM OXYBATE
     Dosage: 3 G, BID
     Route: 048
  4. XYREM [Interacting]
     Active Substance: SODIUM OXYBATE
     Dosage: 4.5 G, BID
     Route: 048
  5. XYREM [Interacting]
     Active Substance: SODIUM OXYBATE
     Dosage: 2.25 G, BID
     Route: 048
  6. ACETAMINOPHEN W/OXYCODONE [Concomitant]
     Active Substance: ACETAMINOPHEN\OXYCODONE HYDROCHLORIDE
     Dosage: 1 DF, PRN
  7. TOPIRAMATE. [Concomitant]
     Active Substance: TOPIRAMATE
     Dosage: 200 MG, BID
  8. XYREM [Interacting]
     Active Substance: SODIUM OXYBATE
     Dosage: UNK UNK, TID
     Route: 048
  9. VENTOLIN [Concomitant]
     Active Substance: ALBUTEROL SULFATE
     Dosage: UNK, PRN
  10. XYREM [Interacting]
     Active Substance: SODIUM OXYBATE
     Dosage: 10 G, DAILY
     Route: 048
  11. XYREM [Interacting]
     Active Substance: SODIUM OXYBATE
     Dosage: 12 G, DAILY
     Route: 048
  12. XYREM [Interacting]
     Active Substance: SODIUM OXYBATE
     Indication: FIBROMYALGIA
     Dosage: 12.75 G, DAILY
     Route: 048
  13. XYREM [Interacting]
     Active Substance: SODIUM OXYBATE
     Dosage: 11.7 G, DAILY
     Route: 048
  14. XYREM [Interacting]
     Active Substance: SODIUM OXYBATE
     Dosage: 12.5 G, DAILY
     Route: 048
  15. XYREM [Interacting]
     Active Substance: SODIUM OXYBATE
     Dosage: 4 G, TID
     Route: 048
  16. SYNTHROID [Concomitant]
     Active Substance: LEVOTHYROXINE SODIUM
     Dosage: 0.137 MG, DAILY
     Route: 048
  17. XYREM [Interacting]
     Active Substance: SODIUM OXYBATE
     Dosage: 12 G, DAILY
     Route: 048
  18. XYREM [Interacting]
     Active Substance: SODIUM OXYBATE
     Dosage: 11.25 G, DAILY
     Route: 048
  19. XYREM [Interacting]
     Active Substance: SODIUM OXYBATE
     Dosage: 4.5 G, BID
     Route: 048
  20. XYREM [Interacting]
     Active Substance: SODIUM OXYBATE
     Dosage: 3 G, BID
     Route: 048
  21. ERGOCALCIFEROL. [Concomitant]
     Active Substance: ERGOCALCIFEROL
     Dosage: 1 DF, DAILY
  22. ROSUVASTATIN. [Concomitant]
     Active Substance: ROSUVASTATIN
     Dosage: 10 MG, DAILY
  23. XYREM [Interacting]
     Active Substance: SODIUM OXYBATE
     Dosage: 8 G, DAILY
     Route: 048
  24. XYREM [Interacting]
     Active Substance: SODIUM OXYBATE
     Dosage: 3.75 G, BID
     Route: 048
  25. HYDROMORPH CONTIN [Suspect]
     Active Substance: HYDROMORPHONE
     Indication: PRODUCT USED FOR UNKNOWN INDICATION
     Dosage: 4.5 MG, BID
     Route: 065
  26. XYREM [Interacting]
     Active Substance: SODIUM OXYBATE
     Dosage: 11 G, DAILY
     Route: 048
  27. XYREM [Interacting]
     Active Substance: SODIUM OXYBATE
     Dosage: 4.5 G, BID
     Route: 048
  28. CIPRALEX [Concomitant]
     Active Substance: ESCITALOPRAM OXALATE
     Dosage: 20 MG, DAILY
  29. MODAFINIL. [Concomitant]
     Active Substance: MODAFINIL
     Dosage: 100 MG, BID
  30. RALIVIA [Interacting]
     Active Substance: TRAMADOL HYDROCHLORIDE
     Indication: PRODUCT USED FOR UNKNOWN INDICATION
     Dosage: UNK, BID
     Route: 065
  31. XYREM [Interacting]
     Active Substance: SODIUM OXYBATE
     Dosage: 2.25 G, BID
     Route: 048
  32. XYREM [Interacting]
     Active Substance: SODIUM OXYBATE
     Dosage: 5 G, BID
     Route: 048
  33. VITAMIN B COMPLEX [Concomitant]
     Active Substance: CYANOCOBALAMIN\DEXPANTHENOL\NIACINAMIDE\PYRIDOXINE HYDROCHLORIDE\RIBOFLAVIN 5^-PHOSPHATE SODIUM\THIAMINE HYDROCHLORIDE\VITAMIN B COMPLEX
     Dosage: 1 DF, DAILY

REACTIONS (17)
  - Aphonia [Not Recovered/Not Resolved]
  - Middle ear effusion [Not Recovered/Not Resolved]
  - Drug hypersensitivity [Not Recovered/Not Resolved]
  - Pain [Not Recovered/Not Resolved]
  - Ear discomfort [Not Recovered/Not Resolved]
  - Asthenia [Not Recovered/Not Resolved]
  - Peripheral swelling [Not Recovered/Not Resolved]
  - Ear infection [Not Recovered/Not Resolved]
  - Drug dose omission [Not Recovered/Not Resolved]
  - Nasopharyngitis [Not Recovered/Not Resolved]
  - General physical health deterioration [Not Recovered/Not Resolved]
  - Screaming [Not Recovered/Not Resolved]
  - Swelling [Not Recovered/Not Resolved]
  - Insomnia [Not Recovered/Not Resolved]
  - Drug interaction [Not Recovered/Not Resolved]
  - Loss of personal independence in daily activities [Not Recovered/Not Resolved]
  - Movement disorder [Not Recovered/Not Resolved]
